FAERS Safety Report 9314734 (Version 1)
Quarter: 2013Q2

REPORT INFORMATION
  Report Type: Spontaneous
  Country: US (occurrence: US)
  Receive Date: 20130529
  Receipt Date: 20130529
  Transmission Date: 20140414
  Serious: Yes (Other)
  Sender: FDA-Public Use
  Company Number: PHHY2013US053929

PATIENT
  Age: 51 Year
  Sex: Female

DRUGS (2)
  1. SANDIMMUNE NEORAL [Suspect]
     Indication: BIRDSHOT CHORIORETINOPATHY
     Dosage: 200 MG PER DAY
  2. CELLCEPT [Suspect]
     Indication: BIRDSHOT CHORIORETINOPATHY
     Dosage: 3 G PER DAY

REACTIONS (2)
  - Neuropathy peripheral [Unknown]
  - Eye inflammation [Unknown]
